FAERS Safety Report 9356548 (Version 1)
Quarter: 2013Q2

REPORT INFORMATION
  Report Type: Spontaneous
  Country: IT (occurrence: IT)
  Receive Date: 20130619
  Receipt Date: 20130619
  Transmission Date: 20140414
  Serious: Yes (Hospitalization)
  Sender: FDA-Public Use
  Company Number: IT-MYLANLABS-2013S1012483

PATIENT
  Age: 73 Year
  Sex: Male

DRUGS (10)
  1. LEVOFLOXACIN [Suspect]
     Indication: HYPERTHERMIA
     Route: 048
     Dates: start: 20130513, end: 20130513
  2. COUMADIN [Concomitant]
     Indication: ATRIAL FIBRILLATION
     Dates: start: 20120101, end: 20130514
  3. KANRENOL [Concomitant]
     Indication: CARDIAC FAILURE
  4. TAPAZOLE [Concomitant]
     Indication: PRODUCT USED FOR UNKNOWN INDICATION
  5. BISOPROLOL [Concomitant]
     Indication: ATRIAL FIBRILLATION
     Dates: start: 20120501, end: 20130514
  6. PROPAFENONE [Concomitant]
     Indication: ATRIAL FIBRILLATION
     Dates: start: 20120501, end: 20130514
  7. RAMIPRIL [Concomitant]
     Indication: HYPERTENSION
  8. FUROSEMIDE [Concomitant]
     Indication: HYPERTENSION
  9. ATORVASTATIN CALCIUM [Concomitant]
     Indication: HYPERTENSION
  10. DOXAZOSIN MESILATE [Concomitant]
     Indication: HYPERTENSION

REACTIONS (2)
  - Hyperthermia [Recovering/Resolving]
  - Rash [Recovering/Resolving]
